FAERS Safety Report 22124047 (Version 3)
Quarter: 2023Q2

REPORT INFORMATION
  Report Type: Report from Study
  Country: US (occurrence: US)
  Receive Date: 20230322
  Receipt Date: 20230415
  Transmission Date: 20230721
  Serious: Yes (Death, Other)
  Sender: FDA-Public Use
  Company Number: US-002147023-NVSC2023US060419

PATIENT
  Sex: Female

DRUGS (1)
  1. ENTRESTO [Suspect]
     Active Substance: SACUBITRIL\VALSARTAN
     Indication: Product used for unknown indication
     Dosage: UNK
     Route: 065

REACTIONS (8)
  - Death [Fatal]
  - Cardiac failure congestive [Unknown]
  - Pericardial effusion [Unknown]
  - Amnesia [Unknown]
  - Cardiac disorder [Unknown]
  - Lung disorder [Unknown]
  - Pleural effusion [Unknown]
  - Peripheral swelling [Unknown]
